FAERS Safety Report 15880595 (Version 1)
Quarter: 2019Q1

REPORT INFORMATION
  Report Type: Spontaneous
  Country: FR (occurrence: FR)
  Receive Date: 20190128
  Receipt Date: 20190128
  Transmission Date: 20190417
  Serious: Yes (Other)
  Sender: FDA-Public Use
  Company Number: FR-TEVA-2019-FR-1003266

PATIENT
  Age: 62 Year
  Sex: Female
  Weight: 64 kg

DRUGS (14)
  1. PANTOPRAZOLE ACTAVIS 20 MG, COMPRIM? GASTRO-R?SISTANT [Suspect]
     Active Substance: PANTOPRAZOLE SODIUM
     Indication: WRONG PATIENT RECEIVED PRODUCT
     Dosage: AT 7:00 P.M
     Route: 048
     Dates: start: 20181123, end: 20181123
  2. TERCIAN 100 MG, COMPRIM? PELLICUL? S?CABLE [Suspect]
     Active Substance: CYAMEMAZINE
     Indication: WRONG PATIENT RECEIVED PRODUCT
     Dosage: AT 7:00 P.M
     Route: 048
     Dates: start: 20181123, end: 20181123
  3. LEPTICUR 10 MG, COMPRIM? [Concomitant]
     Active Substance: TROPATEPINE HYDROCHLORIDE
     Dosage: 10 MILLIGRAM DAILY; IN THE MORNING
     Route: 048
  4. FORLAX 10 G, POUDRE POUR SOLUTION BUVABLE EN SACHET-DOSE [Suspect]
     Active Substance: POLYETHYLENE GLYCOL 4000
     Indication: WRONG PATIENT RECEIVED PRODUCT
     Route: 048
     Dates: start: 20181123, end: 20181123
  5. MOVICOL [Concomitant]
     Active Substance: POLYETHYLENE GLYCOL 3350\POTASSIUM CHLORIDE\SODIUM BICARBONATE\SODIUM CHLORIDE
     Indication: PRODUCT USED FOR UNKNOWN INDICATION
     Dosage: 2 DOSAGE FORMS DAILY;
     Route: 048
  6. TERCIAN 50 MG/5 ML, SOLUTION INJECTABLE EN AMPOULE [Concomitant]
     Indication: PRODUCT USED FOR UNKNOWN INDICATION
     Route: 030
  7. NEULEPTIL 25 MG, COMPRIM? PELLICUL? S?CABLE [Suspect]
     Active Substance: PERICIAZINE
     Indication: WRONG PATIENT RECEIVED PRODUCT
     Dosage: AT 7:00 P.M
     Route: 048
     Dates: start: 20181123, end: 20181123
  8. OLANZAPINE. [Suspect]
     Active Substance: OLANZAPINE
     Indication: WRONG PATIENT RECEIVED PRODUCT
     Dosage: AT 7:00 P.M
     Route: 048
     Dates: start: 20181123, end: 20181123
  9. DEPAKOTE [Concomitant]
     Active Substance: DIVALPROEX SODIUM
     Indication: PRODUCT USED FOR UNKNOWN INDICATION
     Dosage: 500 MILLIGRAM DAILY; IN THE MORNING
     Route: 048
  10. OROKEN 200 MG, COMPRIM? PELLICUL? [Suspect]
     Active Substance: CEFIXIME
     Indication: WRONG PATIENT RECEIVED PRODUCT
     Dosage: AT 7:00 P.M
     Route: 048
     Dates: start: 20181123, end: 20181123
  11. LEPTICUR 10 MG, COMPRIM? [Suspect]
     Active Substance: TROPATEPINE HYDROCHLORIDE
     Indication: WRONG PATIENT RECEIVED PRODUCT
     Dosage: AT 7:00 P.M
     Route: 048
     Dates: start: 20181123, end: 20181123
  12. DIFFU K, G?LULE [Concomitant]
     Active Substance: POTASSIUM CHLORIDE
     Indication: PRODUCT USED FOR UNKNOWN INDICATION
     Dosage: 1800 MILLIGRAM DAILY;
     Route: 048
  13. DEPAKOTE [Concomitant]
     Active Substance: DIVALPROEX SODIUM
     Dosage: 250 MILLIGRAM DAILY; THE EVENING
     Route: 048
  14. RISPERIDONE. [Concomitant]
     Active Substance: RISPERIDONE
     Indication: PRODUCT USED FOR UNKNOWN INDICATION
     Dosage: 4 MILLIGRAM DAILY;
     Route: 048

REACTIONS (2)
  - Wrong patient received product [Recovered/Resolved]
  - Hypotension [Recovered/Resolved with Sequelae]

NARRATIVE: CASE EVENT DATE: 20181123
